FAERS Safety Report 8063790 (Version 4)
Quarter: 2012Q4

REPORT INFORMATION
  Report Type: Report from Study
  Country: KR (occurrence: KR)
  Receive Date: 20110801
  Receipt Date: 20121128
  Transmission Date: 20130627
  Serious: Yes (Disabling)
  Sender: FDA-Public Use
  Company Number: PHHY2011KR67532

PATIENT
  Age: 57 Year
  Sex: Male
  Weight: 60 kg

DRUGS (2)
  1. SEBIVO [Suspect]
     Indication: CHRONIC HEPATITIS B
     Dosage: 600 mg/day
     Route: 048
     Dates: start: 20100708, end: 20110720
  2. HEPSERA [Concomitant]
     Indication: CHRONIC HEPATITIS B
     Dosage: 10 mg, UNK
     Dates: start: 20100708

REACTIONS (5)
  - Weight decreased [Recovered/Resolved]
  - Myopathy [Not Recovered/Not Resolved]
  - Blood lactate dehydrogenase increased [Unknown]
  - Blood creatine phosphokinase increased [Unknown]
  - Hypoaesthesia [Not Recovered/Not Resolved]
